FAERS Safety Report 10701513 (Version 2)
Quarter: 2015Q1

REPORT INFORMATION
  Report Type: Report from Study
  Country: BR (occurrence: BR)
  Receive Date: 20150109
  Receipt Date: 20150120
  Transmission Date: 20150721
  Serious: Yes (Other)
  Sender: FDA-Public Use
  Company Number: ALCN2014BR007268

PATIENT
  Age: 32 Year
  Sex: Female
  Weight: 62 kg

DRUGS (2)
  1. LACRISIN [Concomitant]
     Indication: EYE LUBRICATION THERAPY
     Dosage: 1 UNK, QID
     Route: 047
  2. TRAVATAN BAC-FREE [Suspect]
     Active Substance: TRAVOPROST
     Indication: VISUAL ACUITY REDUCED
     Dosage: 1 GTT, QHS
     Route: 047

REACTIONS (2)
  - Cerebrovascular accident [Recovered/Resolved]
  - Visual impairment [Recovered/Resolved]

NARRATIVE: CASE EVENT DATE: 20141221
